FAERS Safety Report 5879756-7 (Version None)
Quarter: 2008Q3

REPORT INFORMATION
  Report Type: 
  Country: None (occurrence: None)
  Receive Date: 20080912
  Receipt Date: 20080910
  Transmission Date: 20090109
  Serious: Yes (Death)
  Sender: FDA-Public Use
  Company Number: GB-ABBOTT-08P-167-0475615-00

PATIENT
  Age: 53 Year
  Weight: 97 kg

DRUGS (8)
  1. REDUCTIL 10MG [Suspect]
     Indication: WEIGHT CONTROL
     Dates: start: 20080623, end: 20080818
  2. LANSOPRAZOLE [Concomitant]
     Indication: GASTROOESOPHAGEAL REFLUX DISEASE
     Dates: start: 20070901
  3. ALBUTEROL SPIROS [Concomitant]
     Indication: ASTHMA
     Dates: start: 19970101
  4. SALMETEROL [Concomitant]
     Indication: ASTHMA
  5. CLENIL MODULITE [Concomitant]
     Indication: ASTHMA
     Dosage: 250 MCG/PUFF
     Dates: start: 20070101
  6. SIMVASTATIN [Concomitant]
     Indication: HYPERTENSION
  7. BENDROFLUMETHIAZIDE [Concomitant]
     Indication: HYPERTENSION
  8. DOXAZOSIN MESYLATE [Concomitant]
     Indication: HYPERTENSION
     Dosage: 4 DAILY

REACTIONS (1)
  - CARDIAC ARREST [None]
